FAERS Safety Report 9125422 (Version 3)
Quarter: 2014Q3

REPORT INFORMATION
  Report Type: Report from Study
  Country: US (occurrence: US)
  Receive Date: 20130227
  Receipt Date: 20140704
  Transmission Date: 20150326
  Serious: Yes (Hospitalization, Other)
  Sender: FDA-Public Use
  Company Number: US-ALEXION-A201300276

PATIENT

DRUGS (9)
  1. SOLIRIS [Suspect]
     Active Substance: ECULIZUMAB
     Indication: PAROXYSMAL NOCTURNAL HAEMOGLOBINURIA
     Dosage: 600 MG, QW X 4W
     Route: 042
     Dates: end: 20130131
  2. CLINDAMYCIN [Concomitant]
     Active Substance: CLINDAMYCIN\CLINDAMYCIN PHOSPHATE
     Route: 061
  3. COLACE [Concomitant]
     Active Substance: DOCUSATE SODIUM
  4. ATG [Concomitant]
     Active Substance: LAPINE T-LYMPHOCYTE IMMUNE GLOBULIN
     Dosage: UNK, SINGLE
     Dates: start: 201301, end: 201301
  5. BENADRYL [Concomitant]
     Active Substance: DIPHENHYDRAMINE HYDROCHLORIDE
     Indication: PREMEDICATION
  6. TYLENOL [Concomitant]
     Active Substance: ACETAMINOPHEN
     Indication: PREMEDICATION
  7. NEXIUM [Concomitant]
     Active Substance: ESOMEPRAZOLE MAGNESIUM
  8. CARAFATE [Concomitant]
     Active Substance: SUCRALFATE
  9. MULTIVITAMINS, OTHER COMBINATIONS [Concomitant]

REACTIONS (4)
  - Abdominal pain [Unknown]
  - Bone marrow transplant [Unknown]
  - Pancytopenia [Not Recovered/Not Resolved]
  - Upper respiratory tract infection [Unknown]
